FAERS Safety Report 24973525 (Version 1)
Quarter: 2025Q1

REPORT INFORMATION
  Report Type: Spontaneous
  Country: GB (occurrence: GB)
  Receive Date: 20250216
  Receipt Date: 20250216
  Transmission Date: 20250409
  Serious: Yes (Other)
  Sender: ABBVIE
  Company Number: None

PATIENT
  Age: 49 Year
  Sex: Female
  Weight: 83 kg

DRUGS (1)
  1. BOTOX [Suspect]
     Active Substance: ONABOTULINUMTOXINA
     Indication: Migraine
     Route: 065
     Dates: start: 20250120, end: 20250120

REACTIONS (9)
  - Incorrect dose administered [Unknown]
  - Eye pain [Not Recovered/Not Resolved]
  - Eye swelling [Not Recovered/Not Resolved]
  - Migraine [Not Recovered/Not Resolved]
  - Brow ptosis [Not Recovered/Not Resolved]
  - Eyelid ptosis [Unknown]
  - Self-consciousness [Unknown]
  - Facial asymmetry [Unknown]
  - Headache [Unknown]

NARRATIVE: CASE EVENT DATE: 20250101
